FAERS Safety Report 25079453 (Version 2)
Quarter: 2025Q1

REPORT INFORMATION
  Report Type: Spontaneous
  Country: BR (occurrence: BR)
  Receive Date: 20250314
  Receipt Date: 20250318
  Transmission Date: 20250409
  Serious: Yes (Other)
  Sender: PFIZER
  Company Number: BR-PFIZER INC-PV202500030268

PATIENT
  Age: 58 Year
  Sex: Female

DRUGS (1)
  1. VYNDAQEL [Suspect]
     Active Substance: TAFAMIDIS MEGLUMINE
     Dates: start: 2021

REACTIONS (9)
  - Paralysis [Recovering/Resolving]
  - Immunodeficiency [Unknown]
  - Arthralgia [Recovering/Resolving]
  - Viral infection [Unknown]
  - Renal pain [Unknown]
  - Headache [Unknown]
  - Nausea [Unknown]
  - Diarrhoea [Unknown]
  - Eye pain [Unknown]

NARRATIVE: CASE EVENT DATE: 20250201
